FAERS Safety Report 6500626-5 (Version None)
Quarter: 2009Q4

REPORT INFORMATION
  Report Type: 
  Country: None (occurrence: None)
  Receive Date: 20091216
  Receipt Date: 20081209
  Transmission Date: 20100525
  Serious: No
  Sender: FDA-Public Use
  Company Number: A0759774A

PATIENT
  Age: 41 Year
  Sex: Female

DRUGS (2)
  1. COMMIT [Suspect]
     Dates: start: 20081130, end: 20081130
  2. NICORETTE [Suspect]

REACTIONS (2)
  - PARAESTHESIA ORAL [None]
  - RETCHING [None]
